FAERS Safety Report 23511314 (Version 3)
Quarter: 2024Q2

REPORT INFORMATION
  Report Type: Spontaneous
  Country: IE (occurrence: IE)
  Receive Date: 20240212
  Receipt Date: 20240430
  Transmission Date: 20240716
  Serious: Yes (Other)
  Sender: FDA-Public Use
  Company Number: IE-NOVOPROD-1171319

PATIENT
  Sex: Female
  Weight: 89 kg

DRUGS (21)
  1. OZEMPIC [Suspect]
     Active Substance: SEMAGLUTIDE
     Indication: Type 2 diabetes mellitus
     Dosage: UNK (DOSAGE: AS PER DNF)
     Route: 058
     Dates: start: 20220819
  2. BLEPHACLEAN [Concomitant]
     Indication: Product used for unknown indication
     Dosage: BID
  3. FASTUM [KETOPROFEN] [Concomitant]
     Indication: Product used for unknown indication
     Dosage: BID AS REQUIRED
  4. MOVICOL [Concomitant]
     Active Substance: POLYETHYLENE GLYCOL 3350\POTASSIUM CHLORIDE\SODIUM BICARBONATE\SODIUM CHLORIDE
     Indication: Product used for unknown indication
     Dosage: BID
  5. SCHERIPROCT [CINCHOCAINE HYDROCHLORIDE;PREDNISOLONE CAPROATE] [Concomitant]
     Indication: Product used for unknown indication
     Dosage: QD
  6. LANSOPRAZOLE [Concomitant]
     Active Substance: LANSOPRAZOLE
     Indication: Product used for unknown indication
     Dosage: 30 MG, QD
  7. FUROSEMIDE [Concomitant]
     Active Substance: FUROSEMIDE
     Indication: Product used for unknown indication
     Dosage: 20 MG, QD
  8. BUPRENORPHINE [Concomitant]
     Active Substance: BUPRENORPHINE
     Indication: Product used for unknown indication
     Dosage: UNK (AT NIGHT)
  9. ZOPICLONE [Concomitant]
     Active Substance: ZOPICLONE
     Indication: Product used for unknown indication
     Dosage: 7.5MG AT NIGHT
  10. CELEBREX [Concomitant]
     Active Substance: CELECOXIB
     Indication: Product used for unknown indication
     Dosage: 100 MG, BID
  11. OMESAR [OLMESARTAN MEDOXOMIL] [Concomitant]
     Indication: Product used for unknown indication
     Dosage: 20 MG, BID
  12. TRADOL SR [Concomitant]
     Indication: Product used for unknown indication
     Dosage: 100 MG, TID
  13. STAFOXIL [Concomitant]
     Indication: Product used for unknown indication
     Dosage: 500 MG, QID
  14. LYRICA [Concomitant]
     Active Substance: PREGABALIN
     Indication: Product used for unknown indication
     Dosage: 100 MG, TID
  15. TRAMADOL HYDROCHLORIDE [Concomitant]
     Active Substance: TRAMADOL HYDROCHLORIDE
     Indication: Product used for unknown indication
     Dosage: 150 MG, BID
  16. NEOCLARITYN [Concomitant]
     Active Substance: DESLORATADINE
     Indication: Product used for unknown indication
     Dosage: 5 MG, BID
  17. TREHALOSE [Concomitant]
     Active Substance: TREHALOSE
     Indication: Product used for unknown indication
     Dosage: QID
  18. NAFRONYL [Concomitant]
     Active Substance: NAFRONYL
     Indication: Product used for unknown indication
     Dosage: 100 MG, BID
  19. URISPAS [Concomitant]
     Active Substance: FLAVOXATE HYDROCHLORIDE
     Indication: Product used for unknown indication
     Dosage: 200 MG, TID
  20. ACETAMINOPHEN [Concomitant]
     Active Substance: ACETAMINOPHEN
     Indication: Product used for unknown indication
     Dosage: 1000 MG, BID
  21. MAXOLON [Concomitant]
     Active Substance: METOCLOPRAMIDE HYDROCHLORIDE
     Indication: Product used for unknown indication
     Dosage: 10MG

REACTIONS (1)
  - Papillary cystadenoma lymphomatosum [Not Recovered/Not Resolved]
